FAERS Safety Report 4675124-4 (Version None)
Quarter: 2005Q2

REPORT INFORMATION
  Report Type: 
  Country: None (occurrence: None)
  Receive Date: 20050525
  Receipt Date: 20050509
  Transmission Date: 20051028
  Serious: Yes (Death, Life-Threatening)
  Sender: FDA-Public Use
  Company Number: 106605ISR

PATIENT
  Age: 59 Year
  Sex: Male

DRUGS (8)
  1. VINCRISTINE [Suspect]
     Indication: LYMPHOMA
     Dosage: 2 MILLIGRAM
     Dates: start: 20050128, end: 20050128
  2. DOXORUBICIN HYDROCHLORIDE [Suspect]
     Indication: LYMPHOMA
     Dosage: 62 MILLIGRAM
     Dates: start: 20050128, end: 20050128
  3. METHYLPREDNISOLONE SODIUM SUCCINATE [Suspect]
     Dosage: 71 MILLIGRAM
     Dates: start: 20050128, end: 20050201
  4. CISPLATIN [Suspect]
     Dosage: 58 MILLIGRAM
     Dates: start: 20050128, end: 20050130
  5. ETOPOSIDE [Suspect]
     Indication: LYMPHOMA
     Dosage: 180 MILLIGRAM
     Dates: start: 20050128, end: 20050130
  6. GEMCITABINE HYDROCHLORIDE [Suspect]
     Indication: LYMPHOMA
     Dosage: 1786 MILLIGRAM
     Dates: start: 20050128, end: 20050128
  7. METRONIDAZOLE [Suspect]
  8. ONDANSETRON HYDROCHLORIDE [Concomitant]

REACTIONS (9)
  - ABNORMAL BEHAVIOUR [None]
  - ACUTE RESPIRATORY DISTRESS SYNDROME [None]
  - AGNOSIA [None]
  - APHASIA [None]
  - CARDIAC ARREST [None]
  - COMA [None]
  - FEBRILE BONE MARROW APLASIA [None]
  - REFUSAL OF TREATMENT BY PATIENT [None]
  - SPEECH DISORDER [None]
